FAERS Safety Report 24706859 (Version 3)
Quarter: 2025Q1

REPORT INFORMATION
  Report Type: Spontaneous
  Country: FI (occurrence: FI)
  Receive Date: 20241206
  Receipt Date: 20250227
  Transmission Date: 20250409
  Serious: Yes (Other)
  Sender: CSL BEHRING
  Company Number: FI-BEH-2024186778

PATIENT
  Age: 52 Year
  Sex: Female
  Weight: 103 kg

DRUGS (24)
  1. BERINERT [Suspect]
     Active Substance: HUMAN C1-ESTERASE INHIBITOR
     Indication: Hereditary angioedema with normal C1 esterase inhibitor
     Dosage: 3500 IU, BIW
     Route: 065
     Dates: start: 2013
  2. BERINERT [Suspect]
     Active Substance: HUMAN C1-ESTERASE INHIBITOR
     Indication: Hereditary angioedema with normal C1 esterase inhibitor
     Dosage: 3500 IU, BIW
     Route: 065
     Dates: start: 2013
  3. BERINERT [Suspect]
     Active Substance: HUMAN C1-ESTERASE INHIBITOR
     Indication: Prophylaxis
     Route: 065
     Dates: start: 2017
  4. BERINERT [Suspect]
     Active Substance: HUMAN C1-ESTERASE INHIBITOR
     Indication: Prophylaxis
     Route: 065
     Dates: start: 2017
  5. BERINERT [Suspect]
     Active Substance: HUMAN C1-ESTERASE INHIBITOR
     Indication: Off label use
     Dosage: 3500 IU (1PC 1500IU, THE REST 500IU), TWICE A WEEK (WEDNESDAY AND SUNDAY)
     Route: 065
  6. BERINERT [Suspect]
     Active Substance: HUMAN C1-ESTERASE INHIBITOR
     Indication: Off label use
     Dosage: 3500 IU (1PC 1500IU, THE REST 500IU), TWICE A WEEK (WEDNESDAY AND SUNDAY)
     Route: 065
  7. BERINERT [Suspect]
     Active Substance: HUMAN C1-ESTERASE INHIBITOR
     Dosage: 3500 IU/TIME (1PC 1500IU, THE REST 500IU), TWICE A WEEK (WEDNESDAY AND SUNDAY)
     Route: 065
  8. BERINERT [Suspect]
     Active Substance: HUMAN C1-ESTERASE INHIBITOR
     Dosage: 3500 IU/TIME (1PC 1500IU, THE REST 500IU), TWICE A WEEK (WEDNESDAY AND SUNDAY)
     Route: 065
  9. BERINERT [Suspect]
     Active Substance: HUMAN C1-ESTERASE INHIBITOR
     Route: 065
  10. BERINERT [Suspect]
     Active Substance: HUMAN C1-ESTERASE INHIBITOR
     Route: 065
  11. BERINERT [Suspect]
     Active Substance: HUMAN C1-ESTERASE INHIBITOR
     Indication: Hereditary angioedema with normal C1 esterase inhibitor
     Dosage: 3500 IU, BIW
     Route: 065
     Dates: start: 2013
  12. BERINERT [Suspect]
     Active Substance: HUMAN C1-ESTERASE INHIBITOR
     Indication: Hereditary angioedema with normal C1 esterase inhibitor
     Dosage: 3500 IU, BIW
     Route: 065
     Dates: start: 2013
  13. BERINERT [Suspect]
     Active Substance: HUMAN C1-ESTERASE INHIBITOR
     Indication: Prophylaxis
     Route: 065
     Dates: start: 2017
  14. BERINERT [Suspect]
     Active Substance: HUMAN C1-ESTERASE INHIBITOR
     Indication: Prophylaxis
     Route: 065
     Dates: start: 2017
  15. BERINERT [Suspect]
     Active Substance: HUMAN C1-ESTERASE INHIBITOR
     Indication: Off label use
     Route: 065
     Dates: start: 2017
  16. BERINERT [Suspect]
     Active Substance: HUMAN C1-ESTERASE INHIBITOR
     Indication: Off label use
     Route: 065
     Dates: start: 2017
  17. BERINERT [Suspect]
     Active Substance: HUMAN C1-ESTERASE INHIBITOR
     Dosage: 3500 IU ((1PC 1500IU, THE REST 500IU), TWICE A WEEK (WEDNESDAY AND SUNDAY)
     Route: 065
     Dates: start: 2017
  18. BERINERT [Suspect]
     Active Substance: HUMAN C1-ESTERASE INHIBITOR
     Dosage: 3500 IU ((1PC 1500IU, THE REST 500IU), TWICE A WEEK (WEDNESDAY AND SUNDAY)
     Route: 065
     Dates: start: 2017
  19. BERINERT [Suspect]
     Active Substance: HUMAN C1-ESTERASE INHIBITOR
     Dosage: 3500 IU (1PC 1500IU, THE REST 500IU), TWICE A WEEK (WEDNESDAY AND SUNDAY)
     Route: 065
  20. BERINERT [Suspect]
     Active Substance: HUMAN C1-ESTERASE INHIBITOR
     Dosage: 3500 IU (1PC 1500IU, THE REST 500IU), TWICE A WEEK (WEDNESDAY AND SUNDAY)
     Route: 065
  21. BERINERT [Suspect]
     Active Substance: HUMAN C1-ESTERASE INHIBITOR
     Dosage: 3500 IU (1PC 1500IU, THE REST 500IU), TWICE A WEEK (WEDNESDAY AND SUNDAY)
     Route: 065
  22. BERINERT [Suspect]
     Active Substance: HUMAN C1-ESTERASE INHIBITOR
     Dosage: 3500 IU (1PC 1500IU, THE REST 500IU), TWICE A WEEK (WEDNESDAY AND SUNDAY)
     Route: 065
  23. BERINERT [Suspect]
     Active Substance: HUMAN C1-ESTERASE INHIBITOR
     Route: 065
  24. BERINERT [Suspect]
     Active Substance: HUMAN C1-ESTERASE INHIBITOR
     Route: 065

REACTIONS (4)
  - Drug ineffective [Unknown]
  - Stress [Unknown]
  - Poor venous access [Unknown]
  - Off label use [Unknown]
